FAERS Safety Report 9596226 (Version 3)
Quarter: 2014Q1

REPORT INFORMATION
  Report Type: Spontaneous
  Country: CH (occurrence: CH)
  Receive Date: 20131004
  Receipt Date: 20140107
  Transmission Date: 20141002
  Serious: Yes (Other)
  Sender: FDA-Public Use
  Company Number: CH-PFIZER INC-2013281791

PATIENT
  Age: 21 Year
  Sex: Female
  Weight: 63 kg

DRUGS (1)
  1. SAYANA [Suspect]
     Indication: CONTRACEPTION
     Dosage: 104 MG/0.65 ML, EVERY 12 WEEKS
     Route: 058
     Dates: start: 20121126, end: 20130731

REACTIONS (2)
  - Injection site necrosis [Not Recovered/Not Resolved]
  - Injection site reaction [Not Recovered/Not Resolved]
